FAERS Safety Report 5397672-4 (Version None)
Quarter: 2007Q3

REPORT INFORMATION
  Report Type: 
  Country: None (occurrence: None)
  Receive Date: 20070723
  Receipt Date: 20070706
  Transmission Date: 20080115
  Serious: Yes (Death)
  Sender: FDA-Public Use
  Company Number: 2006JP002277

PATIENT
  Sex: Female

DRUGS (2)
  1. PROGRAF [Suspect]
     Indication: LIVER TRANSPLANT
  2. PREDNISOLONE [Concomitant]

REACTIONS (4)
  - COMPLICATIONS OF TRANSPLANTED LIVER [None]
  - FUNGAL SEPSIS [None]
  - PNEUMONIA FUNGAL [None]
  - SURGICAL PROCEDURE REPEATED [None]
